FAERS Safety Report 5248228-5 (Version None)
Quarter: 2007Q1

REPORT INFORMATION
  Report Type: 
  Country: None (occurrence: None)
  Receive Date: 20070227
  Receipt Date: 20060814
  Transmission Date: 20070707
  Serious: No
  Sender: FDA-Public Use
  Company Number: US-BRISTOL-MYERS SQUIBB COMPANY-13485321

PATIENT
  Age: 4 Decade
  Sex: Female

DRUGS (1)
  1. METFORMIN HCL [Suspect]
     Indication: INSULIN RESISTANCE
     Route: 048

REACTIONS (1)
  - WEIGHT DECREASED [None]
